FAERS Safety Report 16379091 (Version 1)
Quarter: 2019Q2

REPORT INFORMATION
  Report Type: Spontaneous
  Country: BE (occurrence: BE)
  Receive Date: 20190531
  Receipt Date: 20190531
  Transmission Date: 20190711
  Serious: Yes (Other)
  Sender: FDA-Public Use
  Company Number: BE-UCBSA-2019022704

PATIENT
  Sex: Male

DRUGS (1)
  1. KEPPRA [Suspect]
     Active Substance: LEVETIRACETAM
     Indication: PRODUCT USED FOR UNKNOWN INDICATION
     Dosage: KEEPRA STRENGTH:450 MG, 2 DOSAGE FORM, ONCE DAILY (QD)
     Route: 048
     Dates: start: 2017

REACTIONS (3)
  - Localised oedema [Unknown]
  - Malaise [Unknown]
  - Seizure [Unknown]
